FAERS Safety Report 23580557 (Version 2)
Quarter: 2024Q2

REPORT INFORMATION
  Report Type: Spontaneous
  Country: AR (occurrence: AR)
  Receive Date: 20240229
  Receipt Date: 20240509
  Transmission Date: 20240716
  Serious: Yes (Life-Threatening, Hospitalization, Other)
  Sender: FDA-Public Use
  Company Number: AR-PFIZER INC-PV202400026732

PATIENT
  Age: 64 Year
  Sex: Female

DRUGS (1)
  1. BEVACIZUMAB [Suspect]
     Active Substance: BEVACIZUMAB
     Indication: Gastrointestinal haemorrhage
     Dosage: 3RD DOSE, UNK

REACTIONS (2)
  - Thrombocytopenia [Recovering/Resolving]
  - Off label use [Unknown]
